FAERS Safety Report 7380225-6 (Version None)
Quarter: 2011Q1

REPORT INFORMATION
  Report Type: 
  Country: None (occurrence: None)
  Receive Date: 20110329
  Receipt Date: 20110118
  Transmission Date: 20110831
  Serious: No
  Sender: FDA-Public Use
  Company Number: A0907801A

PATIENT
  Age: 15 Year
  Sex: Male

DRUGS (1)
  1. LAMICTAL XR [Suspect]
     Route: 048

REACTIONS (4)
  - CONDITION AGGRAVATED [None]
  - PHARYNGITIS [None]
  - EAR INFECTION [None]
  - ACTIVITIES OF DAILY LIVING IMPAIRED [None]
